FAERS Safety Report 16962390 (Version 1)
Quarter: 2019Q4

REPORT INFORMATION
  Report Type: Spontaneous
  Country: CA (occurrence: CA)
  Receive Date: 20191025
  Receipt Date: 20191025
  Transmission Date: 20200122
  Serious: Yes (Hospitalization)
  Sender: FDA-Public Use
  Company Number: CA-PFIZER INC-2019458758

PATIENT
  Age: 31 Year
  Sex: Female

DRUGS (3)
  1. MIDAZOLAM [Suspect]
     Active Substance: MIDAZOLAM HYDROCHLORIDE
     Dosage: UNK
     Route: 040
  2. BENZOCAINE. [Suspect]
     Active Substance: BENZOCAINE
     Indication: APPLICATION SITE ANAESTHESIA
     Dosage: UNK
     Route: 061
  3. MIDAZOLAM [Suspect]
     Active Substance: MIDAZOLAM HYDROCHLORIDE
     Dosage: UNK
     Route: 042

REACTIONS (4)
  - Eyelid oedema [Unknown]
  - Swelling face [Unknown]
  - Swelling of eyelid [Unknown]
  - Rash [Unknown]
